FAERS Safety Report 18119713 (Version 1)
Quarter: 2020Q3

REPORT INFORMATION
  Report Type: Spontaneous
  Country: JP (occurrence: JP)
  Receive Date: 20200806
  Receipt Date: 20200806
  Transmission Date: 20201103
  Serious: Yes (Other)
  Sender: FDA-Public Use
  Company Number: JP-PFIZER INC-2020295630

PATIENT
  Age: 60 Year
  Sex: Female

DRUGS (3)
  1. EXEMESTANE. [Suspect]
     Active Substance: EXEMESTANE
     Indication: HORMONE THERAPY
     Dosage: UNK
     Route: 048
  2. EXEMESTANE. [Interacting]
     Active Substance: EXEMESTANE
     Dosage: 25 MG, DAILY
     Route: 048
  3. EVEROLIMUS. [Interacting]
     Active Substance: EVEROLIMUS
     Dosage: 10 MG, DAILY
     Route: 048

REACTIONS (2)
  - Drug interaction [Unknown]
  - Pericardial effusion [Recovering/Resolving]
